FAERS Safety Report 16095019 (Version 1)
Quarter: 2019Q1

REPORT INFORMATION
  Report Type: Spontaneous
  Country: US (occurrence: US)
  Receive Date: 20190320
  Receipt Date: 20190320
  Transmission Date: 20190418
  Serious: Yes (Death, Other)
  Sender: FDA-Public Use
  Company Number: US-SA-2019SA076209

PATIENT
  Age: 9 Year
  Sex: Male

DRUGS (1)
  1. LUMIZYME [Suspect]
     Active Substance: ALGLUCOSIDASE ALFA
     Indication: GLYCOGEN STORAGE DISEASE TYPE II
     Dosage: 530 MG, QOW
     Route: 041
     Dates: start: 20150812

REACTIONS (2)
  - Death [Fatal]
  - Mechanical ventilation [Unknown]

NARRATIVE: CASE EVENT DATE: 20190315
